FAERS Safety Report 22306449 (Version 1)
Quarter: 2023Q2

REPORT INFORMATION
  Report Type: Spontaneous
  Country: US (occurrence: US)
  Receive Date: 20230511
  Receipt Date: 20230511
  Transmission Date: 20230722
  Serious: No
  Sender: FDA-Public Use
  Company Number: US-SIEMENS HEALTHCARE LIMITED-PET-000018-2022

PATIENT
  Age: 16 Year
  Sex: Female

DRUGS (1)
  1. FLUDEOXYGLUCOSE F-18 [Suspect]
     Active Substance: FLUDEOXYGLUCOSE F-18
     Indication: Positron emission tomogram
     Dosage: UNK
     Route: 065

REACTIONS (1)
  - Positron emission tomogram abnormal [Unknown]
